FAERS Safety Report 7957927-3 (Version None)
Quarter: 2011Q4

REPORT INFORMATION
  Report Type: 
  Country: None (occurrence: None)
  Receive Date: 20111205
  Receipt Date: 20111125
  Transmission Date: 20120403
  Serious: Yes (Hospitalization)
  Sender: FDA-Public Use
  Company Number: DE-ABBOTT-11P-062-0862574-00

PATIENT
  Sex: Female
  Weight: 93 kg

DRUGS (11)
  1. BETA BLOCKER [Concomitant]
     Indication: PRODUCT USED FOR UNKNOWN INDICATION
  2. MARCUMAR [Concomitant]
     Indication: PRODUCT USED FOR UNKNOWN INDICATION
  3. ALENDRON ACID [Concomitant]
     Indication: PRODUCT USED FOR UNKNOWN INDICATION
  4. METHOTREXATE [Concomitant]
     Indication: PRODUCT USED FOR UNKNOWN INDICATION
  5. UNKNOWN MEDICATION [Concomitant]
     Indication: PROPHYLAXIS
  6. HUMIRA [Suspect]
     Indication: RHEUMATOID ARTHRITIS
     Dates: start: 20081215
  7. PREDNISOLONE [Concomitant]
     Indication: PRODUCT USED FOR UNKNOWN INDICATION
  8. UNKNOWN MEDICATION [Concomitant]
     Indication: GASTRIC DISORDER
  9. CALCIUM [Concomitant]
     Indication: PRODUCT USED FOR UNKNOWN INDICATION
  10. LEVOTHYROXINE SODIUM [Concomitant]
     Indication: PRODUCT USED FOR UNKNOWN INDICATION
  11. FOLIC ACID [Concomitant]
     Indication: PRODUCT USED FOR UNKNOWN INDICATION

REACTIONS (13)
  - ACUTE CORONARY SYNDROME [None]
  - PULMONARY OEDEMA [None]
  - LEFT ATRIAL DILATATION [None]
  - TACHYARRHYTHMIA [None]
  - DYSPNOEA EXERTIONAL [None]
  - CARDIAC FAILURE [None]
  - ARRHYTHMIA [None]
  - ATRIAL FIBRILLATION [None]
  - DIVERTICULUM [None]
  - DIARRHOEA [None]
  - GASTROINTESTINAL INFECTION [None]
  - OEDEMA PERIPHERAL [None]
  - PULMONARY CONGESTION [None]
